FAERS Safety Report 6228239-3 (Version None)
Quarter: 2009Q2

REPORT INFORMATION
  Report Type: 
  Country: None (occurrence: None)
  Receive Date: 20090612
  Receipt Date: 20090604
  Transmission Date: 20091009
  Serious: Yes (Hospitalization)
  Sender: FDA-Public Use
  Company Number: FR-GENENTECH-238094

PATIENT
  Sex: Female
  Weight: 46.6 kg

DRUGS (5)
  1. RITUXIMAB [Suspect]
     Indication: B-CELL LYMPHOMA
     Dosage: 536.25 MG, UNK
     Route: 042
     Dates: start: 20061122
  2. CYCLOPHOSPHAMIDE [Suspect]
     Indication: B-CELL LYMPHOMA
     Dosage: 1072.5 MG, UNK
     Route: 042
     Dates: start: 20061122
  3. DEXRAZOXANE [Suspect]
     Indication: B-CELL LYMPHOMA
     Dosage: 1430 MG, UNK
     Route: 042
     Dates: start: 20061122
  4. DOXORUBICIN HCL [Suspect]
     Indication: B-CELL LYMPHOMA
     Dosage: 71.5 MG, UNK
     Route: 042
     Dates: start: 20061122
  5. VINCRISTINE [Suspect]
     Indication: B-CELL LYMPHOMA
     Dosage: 2 MG, UNK
     Route: 042
     Dates: start: 20061122

REACTIONS (1)
  - MALNUTRITION [None]
